FAERS Safety Report 8950787 (Version 1)
Quarter: 2012Q4

REPORT INFORMATION
  Report Type: Spontaneous
  Country: US (occurrence: None)
  Receive Date: 20121128
  Receipt Date: 20121128
  Transmission Date: 20130627
  Serious: Yes (Hospitalization)
  Sender: FDA-Public Use
  Company Number: USA/USA/12/0026747

PATIENT
  Age: 49 Year
  Sex: Male

DRUGS (3)
  1. LANSOPRAZOLE [Suspect]
     Indication: HELICOBACTER PYLORI GASTRITIS
  2. AMOXICILLIN [Suspect]
  3. CLARITHROMYCIN (CLARITHROMYCIN) [Suspect]

REACTIONS (3)
  - Acute psychosis [None]
  - Unresponsive to stimuli [None]
  - Dyskinesia [None]
